FAERS Safety Report 8005021-8 (Version None)
Quarter: 2011Q4

REPORT INFORMATION
  Report Type: 
  Country: None (occurrence: None)
  Receive Date: 20111220
  Receipt Date: 20111205
  Transmission Date: 20120403
  Serious: Yes (Other)
  Sender: FDA-Public Use
  Company Number: 2011SP058351

PATIENT
  Age: 50 Year
  Sex: Female

DRUGS (5)
  1. REBETOL [Suspect]
     Dosage: 1200 MG;QD
     Dates: start: 20111031, end: 20111204
  2. VICTRELIS [Suspect]
     Indication: HEPATIC CIRRHOSIS
     Dosage: 2400 MG;QD
     Dates: start: 20111128
  3. VICTRELIS [Suspect]
     Indication: NO THERAPEUTIC RESPONSE
     Dosage: 2400 MG;QD
     Dates: start: 20111128
  4. VICTRELIS [Suspect]
     Indication: HEPATITIS C
     Dosage: 2400 MG;QD
     Dates: start: 20111128
  5. PEG-INTRON [Suspect]
     Indication: PRODUCT USED FOR UNKNOWN INDICATION
     Dosage: 120 MCG;QW
     Dates: start: 20111031, end: 20111204

REACTIONS (6)
  - HAEMOLYTIC ANAEMIA [None]
  - THROMBOCYTOPENIA [None]
  - LEUKOPENIA [None]
  - ENCEPHALOPATHY [None]
  - BLOOD BILIRUBIN INCREASED [None]
  - DIABETES MELLITUS [None]
